FAERS Safety Report 16323726 (Version 5)
Quarter: 2019Q3

REPORT INFORMATION
  Report Type: Spontaneous
  Country: US (occurrence: US)
  Receive Date: 20190517
  Receipt Date: 20190725
  Transmission Date: 20191004
  Serious: No
  Sender: FDA-Public Use
  Company Number: PHEH2019US020096

PATIENT
  Age: 72 Year
  Sex: Female

DRUGS (2)
  1. AFINITOR [Suspect]
     Active Substance: EVEROLIMUS
     Indication: RENAL CANCER
     Dosage: 5 MG, QD
     Route: 048
  2. LENVATINIB [Suspect]
     Active Substance: LENVATINIB
     Indication: RENAL CANCER
     Dosage: 10 MG, QD
     Route: 048
     Dates: start: 20181011

REACTIONS (10)
  - Protein total decreased [Unknown]
  - Abdominal discomfort [Unknown]
  - Blood pressure diastolic increased [Unknown]
  - Peripheral swelling [Unknown]
  - Skin exfoliation [Unknown]
  - Fatigue [Unknown]
  - Contusion [Unknown]
  - Stomatitis [Unknown]
  - Diarrhoea [Unknown]
  - Epistaxis [Recovering/Resolving]

NARRATIVE: CASE EVENT DATE: 20190322
